FAERS Safety Report 9262615 (Version 1)
Quarter: 2013Q2

REPORT INFORMATION
  Report Type: Spontaneous
  Country: AU (occurrence: AU)
  Receive Date: 20130430
  Receipt Date: 20130430
  Transmission Date: 20140414
  Serious: Yes (Other)
  Sender: FDA-Public Use
  Company Number: AU-ELI_LILLY_AND_COMPANY-AU201304007818

PATIENT
  Age: 39 Year
  Sex: Male

DRUGS (4)
  1. OLANZAPINE [Suspect]
     Dosage: 2.5 MG, QD
  2. LITHICARB [Concomitant]
     Dosage: 1.3 G, QD
     Route: 048
  3. VARENICLINE [Concomitant]
     Indication: TOBACCO USER
     Dosage: UNK
     Route: 048
     Dates: start: 20121031
  4. VENLAFAXINE [Concomitant]
     Dosage: 75 MG, UNK

REACTIONS (4)
  - Haematemesis [Not Recovered/Not Resolved]
  - Malaise [Not Recovered/Not Resolved]
  - Abdominal pain upper [Not Recovered/Not Resolved]
  - Nausea [Not Recovered/Not Resolved]
